FAERS Safety Report 8990161 (Version 5)
Quarter: 2013Q3

REPORT INFORMATION
  Report Type: Spontaneous
  Country: US (occurrence: US)
  Receive Date: 20121228
  Receipt Date: 20130904
  Transmission Date: 20140515
  Serious: Yes (Death, Hospitalization, Other)
  Sender: FDA-Public Use
  Company Number: US-PFIZER INC-2012328295

PATIENT
  Age: 61 Year
  Sex: Female

DRUGS (2)
  1. XALKORI [Suspect]
     Indication: LUNG NEOPLASM MALIGNANT
     Dosage: 250 MG, 2X/DAY
     Dates: start: 20121221
  2. XALKORI [Suspect]
     Dosage: 500 MG, UNK
     Dates: start: 20121221

REACTIONS (5)
  - Death [Fatal]
  - Ulcer [Unknown]
  - Cerebrovascular accident [Unknown]
  - Dysphagia [Unknown]
  - Vomiting [Unknown]
